FAERS Safety Report 6931047-9 (Version None)
Quarter: 2010Q3

REPORT INFORMATION
  Report Type: 
  Country: None (occurrence: None)
  Receive Date: 20100817
  Receipt Date: 20100817
  Transmission Date: 20110219
  Serious: Yes (Death)
  Sender: FDA-Public Use
  Company Number: None

PATIENT
  Age: 80 Year
  Sex: Female
  Weight: 68.2 kg

DRUGS (1)
  1. MULTIHANCE [Suspect]
     Indication: HEMIANOPIA
     Dosage: 13.5 ML ONCE 040
     Dates: start: 20100723

REACTIONS (3)
  - CARDIO-RESPIRATORY ARREST [None]
  - CHEST PAIN [None]
  - DYSPNOEA [None]
